FAERS Safety Report 7649369-5 (Version None)
Quarter: 2011Q3

REPORT INFORMATION
  Report Type: 
  Country: None (occurrence: None)
  Receive Date: 20110802
  Receipt Date: 20110722
  Transmission Date: 20111222
  Serious: Yes (Other)
  Sender: FDA-Public Use
  Company Number: JP-BAYER-200912764BYL

PATIENT
  Age: 68 Year
  Sex: Female
  Weight: 48 kg

DRUGS (10)
  1. NEXAVAR [Suspect]
     Indication: RENAL CELL CARCINOMA
     Route: 048
     Dates: start: 20090622, end: 20090722
  2. NEXAVAR [Suspect]
     Dosage: DAILY DOSE 200 MG
     Route: 048
     Dates: start: 20090819, end: 20091110
  3. DIOVAN [Concomitant]
     Dosage: 80 MG (DAILY DOSE), , ORAL
     Route: 048
     Dates: start: 20080701
  4. WARFARIN [Concomitant]
     Indication: PROSTHETIC VESSEL IMPLANTATION
     Dosage: DAILY DOSE 3.5 MG
     Route: 048
     Dates: start: 20090823
  5. WARFARIN [Concomitant]
     Indication: THROMBOSIS PROPHYLAXIS
  6. INTERFERON ALFA [Suspect]
     Indication: PRODUCT USED FOR UNKNOWN INDICATION
     Dosage: 5 MIU, TIW
     Route: 058
     Dates: start: 20090622, end: 20090722
  7. URSO 250 [Concomitant]
     Indication: PROPHYLAXIS
     Dosage: 600 MG (DAILY DOSE), , ORAL
     Route: 048
     Dates: start: 20090902, end: 20090930
  8. LANSOPRAZOLE [Concomitant]
     Dosage: 15 MG (DAILY DOSE), , ORAL
     Route: 048
  9. NEXAVAR [Suspect]
     Dosage: DAILY DOSE 400 MG
     Route: 048
     Dates: start: 20091111, end: 20100310
  10. INTERFERON ALFA [Concomitant]
     Route: 040

REACTIONS (2)
  - PALMAR-PLANTAR ERYTHRODYSAESTHESIA SYNDROME [None]
  - HEPATIC FUNCTION ABNORMAL [None]
